FAERS Safety Report 5403226-3 (Version None)
Quarter: 2007Q3

REPORT INFORMATION
  Report Type: 
  Country: None (occurrence: None)
  Receive Date: 20070801
  Receipt Date: 20070716
  Transmission Date: 20080115
  Serious: Yes (Death)
  Sender: FDA-Public Use
  Company Number: US-PFIZER INC-2007053425

PATIENT
  Sex: Male

DRUGS (7)
  1. SUTENT [Suspect]
     Indication: NON-SMALL CELL LUNG CANCER
     Dates: start: 20070611, end: 20070628
  2. SUTENT [Suspect]
     Indication: METASTASES TO CENTRAL NERVOUS SYSTEM
  3. AVAPRO [Concomitant]
  4. NEXIUM [Concomitant]
  5. LASIX [Concomitant]
  6. LORAZEPAM [Concomitant]
  7. DECADRON [Concomitant]

REACTIONS (1)
  - PULMONARY EMBOLISM [None]
